FAERS Safety Report 6647427-5 (Version None)
Quarter: 2010Q1

REPORT INFORMATION
  Report Type: 
  Country: None (occurrence: None)
  Receive Date: 20100323
  Receipt Date: 20100316
  Transmission Date: 20100710
  Serious: Yes (Hospitalization)
  Sender: FDA-Public Use
  Company Number: US-GILEAD-2010-0027100

PATIENT
  Sex: Female
  Weight: 57.658 kg

DRUGS (19)
  1. LETAIRIS [Suspect]
     Indication: PULMONARY ARTERIAL HYPERTENSION
     Route: 048
     Dates: start: 20090117
  2. CARVEDILOL [Concomitant]
  3. LABETALOL HCL [Concomitant]
  4. LISINOPRIL [Concomitant]
  5. ATENOLOL/CHLORTHAL [Concomitant]
  6. PROCARDIA XL [Concomitant]
  7. CRESTOR [Concomitant]
  8. CHOLESTYRAMINE PWD [Concomitant]
  9. CLONAZEPAM [Concomitant]
  10. BUMEX [Concomitant]
  11. METFORMIN HCL [Concomitant]
  12. PLAVIX [Concomitant]
  13. PREDNISONE TAB [Concomitant]
  14. ALLOPURINOL [Concomitant]
  15. MULTI-VITAMIN [Concomitant]
  16. FOLIC ACID [Concomitant]
  17. FISH OIL [Concomitant]
  18. TASPRIN [Concomitant]
  19. XYZAL [Concomitant]

REACTIONS (2)
  - ACUTE MYOCARDIAL INFARCTION [None]
  - CORONARY ARTERY BYPASS [None]
